FAERS Safety Report 5893375-8 (Version None)
Quarter: 2008Q3

REPORT INFORMATION
  Report Type: 
  Country: None (occurrence: None)
  Receive Date: 20080923
  Receipt Date: 20080916
  Transmission Date: 20090109
  Serious: Yes (Disabling)
  Sender: FDA-Public Use
  Company Number: DE-MERCK-0809DEU00093

PATIENT
  Age: 70 Year
  Sex: Male
  Weight: 70 kg

DRUGS (8)
  1. VYTORIN [Suspect]
     Route: 048
  2. LEVETIRACETAM [Concomitant]
     Indication: MYOCLONUS
     Route: 065
     Dates: start: 20070401, end: 20070901
  3. LEVETIRACETAM [Concomitant]
     Route: 065
     Dates: start: 20070902, end: 20070101
  4. LEVETIRACETAM [Concomitant]
     Route: 065
     Dates: start: 20070101, end: 20070101
  5. LEVETIRACETAM [Concomitant]
     Route: 065
     Dates: start: 20071101, end: 20070101
  6. ASPIRIN [Suspect]
     Route: 048
  7. METOPROLOL SUCCINATE [Suspect]
     Route: 048
  8. RAMIPRIL [Suspect]
     Route: 048

REACTIONS (4)
  - CEREBELLAR SYNDROME [None]
  - JOINT INSTABILITY [None]
  - SLEEP DISORDER [None]
  - THINKING ABNORMAL [None]
